FAERS Safety Report 12234403 (Version 1)
Quarter: 2016Q2

REPORT INFORMATION
  Report Type: Spontaneous
  Country: US (occurrence: None)
  Receive Date: 20160401
  Receipt Date: 20160401
  Transmission Date: 20160815
  Serious: Yes (Hospitalization)
  Sender: FDA-Public Use
  Company Number: None

PATIENT
  Age: 81 Year
  Sex: Male
  Weight: 119.5 kg

DRUGS (1)
  1. WARFARIN [Suspect]
     Active Substance: WARFARIN
     Dosage: MG PO
     Route: 048
     Dates: start: 20150408, end: 20160218

REACTIONS (5)
  - Faeces discoloured [None]
  - Anaemia [None]
  - Melaena [None]
  - Haemoptysis [None]
  - International normalised ratio increased [None]

NARRATIVE: CASE EVENT DATE: 20160218
